FAERS Safety Report 21082575 (Version 1)
Quarter: 2022Q3

REPORT INFORMATION
  Report Type: Spontaneous
  Country: US (occurrence: None)
  Receive Date: 20220714
  Receipt Date: 20220714
  Transmission Date: 20221027
  Serious: Yes (Death)
  Sender: FDA-Public Use
  Company Number: None

PATIENT
  Sex: Male

DRUGS (1)
  1. UDENYCA [Suspect]
     Active Substance: PEGFILGRASTIM-CBQV
     Indication: Oesophageal carcinoma
     Dosage: OTHER QUANTITY : 6 MG/0.6ML;?
     Route: 058
     Dates: start: 20220428

REACTIONS (1)
  - Death [None]
